FAERS Safety Report 8579921-4 (Version None)
Quarter: 2012Q3

REPORT INFORMATION
  Report Type: 
  Country: None (occurrence: None)
  Receive Date: 20120808
  Receipt Date: 20120730
  Transmission Date: 20120928
  Serious: Yes (Hospitalization)
  Sender: FDA-Public Use
  Company Number: US-ASTRAZENECA-2012SE41051

PATIENT
  Age: 42 Year
  Sex: Female
  Weight: 125.2 kg

DRUGS (6)
  1. LISINOPRIL [Concomitant]
     Route: 048
  2. NEXIUM [Suspect]
     Route: 048
  3. LEVEMIR [Concomitant]
     Dosage: 100 UNITS/ML, 60 UNT BID
     Route: 058
  4. METFORMIN HCL [Concomitant]
     Route: 048
  5. CRESTOR [Suspect]
     Route: 048
  6. NOVOLOG [Concomitant]
     Dosage: 100 UNITS/ML PRN
     Route: 058

REACTIONS (17)
  - HYPERTENSION [None]
  - NAUSEA [None]
  - DEHYDRATION [None]
  - ABDOMINAL PAIN [None]
  - MUSCULOSKELETAL STIFFNESS [None]
  - DECREASED APPETITE [None]
  - DIARRHOEA [None]
  - TYPE 1 DIABETES MELLITUS [None]
  - MYOCARDIAL INFARCTION [None]
  - DIZZINESS [None]
  - HYPOTENSION [None]
  - TACHYCARDIA [None]
  - HEAT STROKE [None]
  - ASTHENIA [None]
  - BLOOD GLUCOSE ABNORMAL [None]
  - RESPIRATORY DISORDER [None]
  - HYPERLIPIDAEMIA [None]
